FAERS Safety Report 21580847 (Version 1)
Quarter: 2022Q4

REPORT INFORMATION
  Report Type: Report from Study
  Country: US (occurrence: US)
  Receive Date: 20221111
  Receipt Date: 20221111
  Transmission Date: 20230112
  Serious: No
  Sender: FDA-Public Use
  Company Number: US-ABBVIE-22K-163-4398699-00

PATIENT
  Sex: Female

DRUGS (2)
  1. RINVOQ [Suspect]
     Active Substance: UPADACITINIB
     Indication: Rheumatoid arthritis
     Dosage: EXTENDED RELEASE?STRENGTH: 15 MILLIGRAM
     Route: 048
     Dates: start: 202205, end: 2022
  2. RINVOQ [Suspect]
     Active Substance: UPADACITINIB
     Indication: Rheumatoid arthritis
     Dosage: EXTENDED RELEASE?STRENGTH: 15 MILLIGRAM
     Route: 048
     Dates: start: 20220706

REACTIONS (7)
  - Peripheral swelling [Unknown]
  - Peripheral swelling [Recovered/Resolved]
  - Osteoarthritis [Recovered/Resolved]
  - Folliculitis [Recovering/Resolving]
  - Joint effusion [Unknown]
  - Sinusitis [Recovered/Resolved]
  - Rheumatoid arthritis [Unknown]

NARRATIVE: CASE EVENT DATE: 20220101
